FAERS Safety Report 25402034 (Version 1)
Quarter: 2025Q2

REPORT INFORMATION
  Report Type: Spontaneous
  Country: PL (occurrence: PL)
  Receive Date: 20250605
  Receipt Date: 20250605
  Transmission Date: 20250716
  Serious: Yes (Hospitalization)
  Sender: ROCHE
  Company Number: None

PATIENT
  Age: 46 Year
  Sex: Female
  Weight: 72 kg

DRUGS (1)
  1. PERJETA [Suspect]
     Active Substance: PERTUZUMAB
     Indication: Breast neoplasm
     Route: 042
     Dates: start: 20250131, end: 20250131

REACTIONS (5)
  - Erythema [Recovered/Resolved]
  - Dizziness [Recovered/Resolved]
  - Blood pressure normal [Recovered/Resolved]
  - Heart rate normal [Recovered/Resolved]
  - Hypersensitivity [Recovered/Resolved]

NARRATIVE: CASE EVENT DATE: 20250131
